FAERS Safety Report 6291894-6 (Version None)
Quarter: 2009Q3

REPORT INFORMATION
  Report Type: 
  Country: None (occurrence: None)
  Receive Date: 20090730
  Receipt Date: 20090722
  Transmission Date: 20100115
  Serious: Yes (Other)
  Sender: FDA-Public Use
  Company Number: US-AMGEN-QUU356943

PATIENT
  Sex: Female

DRUGS (2)
  1. ENBREL [Suspect]
     Indication: RHEUMATOID ARTHRITIS
     Route: 058
     Dates: start: 20090702, end: 20090709
  2. PLAQUENIL [Concomitant]
     Dates: start: 20080722

REACTIONS (2)
  - HYPERSENSITIVITY [None]
  - PHARYNGEAL OEDEMA [None]
